FAERS Safety Report 11391226 (Version 3)
Quarter: 2015Q4

REPORT INFORMATION
  Report Type: Report from Study
  Country: US (occurrence: US)
  Receive Date: 20150818
  Receipt Date: 20151204
  Transmission Date: 20160304
  Serious: Yes (Hospitalization)
  Sender: FDA-Public Use
  Company Number: US-BIOGENIDEC-2015BI111785

PATIENT
  Age: 44 Year
  Sex: Female
  Weight: 95 kg

DRUGS (4)
  1. NORETHINDRONE AND ETHINYL ESTRADIOL [Concomitant]
     Active Substance: ETHINYL ESTRADIOL\NORETHINDRONE
     Indication: CONTRACEPTION
     Route: 048
     Dates: start: 20150513
  2. MECLIZINE [Concomitant]
     Active Substance: MECLIZINE\MECLIZINE HYDROCHLORIDE
     Indication: DIZZINESS
     Route: 048
     Dates: start: 20140619
  3. AVONEX [Suspect]
     Active Substance: INTERFERON BETA-1A
     Indication: MULTIPLE SCLEROSIS
     Route: 030
  4. BLINDED THERAPY [Concomitant]
     Active Substance: INVESTIGATIONAL PRODUCT
     Route: 042
     Dates: start: 20140522

REACTIONS (1)
  - Uterine leiomyoma [Recovered/Resolved]

NARRATIVE: CASE EVENT DATE: 20150806
